FAERS Safety Report 4547319-1 (Version None)
Quarter: 2005Q1

REPORT INFORMATION
  Report Type: 
  Country: None (occurrence: None)
  Receive Date: 20050105
  Receipt Date: 20041223
  Transmission Date: 20050727
  Serious: Yes (Hospitalization, Other)
  Sender: FDA-Public Use
  Company Number: 2004119081

PATIENT
  Sex: Female

DRUGS (1)
  1. CELEBREX [Suspect]
     Indication: BONE PAIN
     Dosage: ORAL
     Route: 048

REACTIONS (3)
  - ECONOMIC PROBLEM [None]
  - SPINAL OPERATION [None]
  - TREATMENT NONCOMPLIANCE [None]
